FAERS Safety Report 13611618 (Version 1)
Quarter: 2017Q2

REPORT INFORMATION
  Report Type: Report from Study
  Country: ZA (occurrence: ZA)
  Receive Date: 20170605
  Receipt Date: 20170605
  Transmission Date: 20170830
  Serious: Yes (Death, Hospitalization)
  Sender: FDA-Public Use
  Company Number: ZA-AMGEN-ZAFSL2017085416

PATIENT
  Age: 48 Year
  Sex: Male

DRUGS (1)
  1. ARANESP [Suspect]
     Active Substance: DARBEPOETIN ALFA
     Indication: CHRONIC KIDNEY DISEASE
     Dosage: 60 MUG, QWK
     Route: 058
     Dates: start: 201610, end: 201705

REACTIONS (2)
  - Surgery [Unknown]
  - Post procedural complication [Fatal]

NARRATIVE: CASE EVENT DATE: 201705
